FAERS Safety Report 9006187 (Version 1)
Quarter: 2013Q1

REPORT INFORMATION
  Report Type: Spontaneous
  Country: US (occurrence: US)
  Receive Date: 20130110
  Receipt Date: 20130110
  Transmission Date: 20140127
  Serious: Yes (Life-Threatening)
  Sender: FDA-Public Use
  Company Number: US-009507513-0907USA03756

PATIENT
  Age: 63 Year
  Sex: Male
  Weight: 92.99 kg

DRUGS (1)
  1. SINGULAIR [Suspect]
     Indication: RESPIRATORY TRACT INFECTION
     Dosage: 1 DF, QD
     Route: 048
     Dates: start: 19980129, end: 20081109

REACTIONS (1)
  - Upper respiratory tract infection [Unknown]
